FAERS Safety Report 7820342-7 (Version None)
Quarter: 2011Q4

REPORT INFORMATION
  Report Type: 
  Country: None (occurrence: None)
  Receive Date: 20111018
  Receipt Date: 20111007
  Transmission Date: 20120403
  Serious: Yes (Hospitalization, Disabling)
  Sender: FDA-Public Use
  Company Number: PL-BAYER-2011-096200

PATIENT
  Sex: Female

DRUGS (1)
  1. MIRENA [Suspect]
     Dosage: UNK
     Route: 015
     Dates: start: 20081101, end: 20110501

REACTIONS (4)
  - OPTIC NERVE DISORDER [None]
  - OPTIC NEUROPATHY [None]
  - BLINDNESS UNILATERAL [None]
  - VISUAL IMPAIRMENT [None]
